FAERS Safety Report 13100407 (Version 1)
Quarter: 2017Q1

REPORT INFORMATION
  Report Type: Spontaneous
  Country: US (occurrence: US)
  Receive Date: 20170110
  Receipt Date: 20170110
  Transmission Date: 20170428
  Serious: No
  Sender: FDA-Public Use
  Company Number: US-BAYER-2017-004661

PATIENT
  Sex: Female
  Weight: 64 kg

DRUGS (6)
  1. B COMPLEX [B3,B6,B2,B1 HCL] [Concomitant]
  2. VINPOTON [Concomitant]
  3. SIMVASTATIN. [Concomitant]
     Active Substance: SIMVASTATIN
  4. MIRALAX [Suspect]
     Active Substance: POLYETHYLENE GLYCOL 3350
     Indication: GASTROINTESTINAL DISORDER
     Route: 048
     Dates: start: 2015
  5. MULTIVITAMIN [Concomitant]
     Active Substance: VITAMINS
  6. ANDREWS ANTACID [Concomitant]

REACTIONS (2)
  - Product use issue [Unknown]
  - Drug ineffective [Unknown]
